FAERS Safety Report 10081963 (Version 3)
Quarter: 2014Q2

REPORT INFORMATION
  Report Type: Spontaneous
  Country: US (occurrence: None)
  Receive Date: 20140414
  Receipt Date: 20140502
  Transmission Date: 20141212
  Serious: Yes (Other)
  Sender: FDA-Public Use
  Company Number: 2014P1003015

PATIENT
  Age: 19 Year
  Sex: Female

DRUGS (3)
  1. MYORISAN [Suspect]
     Indication: ACNE
     Dosage: 40 MG QD PO.
     Dates: start: 20131220, end: 20140403
  2. MYORISAN [Suspect]
     Indication: ACNE
     Route: 048
     Dates: start: 20140122, end: 20140403
  3. ALPRAZOLAM [Concomitant]

REACTIONS (3)
  - Depression [None]
  - Condition aggravated [None]
  - No therapeutic response [None]
